FAERS Safety Report 18299229 (Version 4)
Quarter: 2021Q2

REPORT INFORMATION
  Report Type: Report from Study
  Country: US (occurrence: US)
  Receive Date: 20200922
  Receipt Date: 20210618
  Transmission Date: 20210717
  Serious: No
  Sender: FDA-Public Use
  Company Number: NVSC2020US258468

PATIENT
  Age: 56 Year
  Sex: Female

DRUGS (1)
  1. ENTRESTO [Suspect]
     Active Substance: SACUBITRIL\VALSARTAN
     Indication: CARDIAC FAILURE
     Dosage: 200 MG, BID (97/103 MG)
     Route: 048
     Dates: start: 201901

REACTIONS (8)
  - Weight decreased [Unknown]
  - Inappropriate schedule of product administration [Unknown]
  - Throat clearing [Unknown]
  - Apathy [Unknown]
  - Sinus disorder [Unknown]
  - Rash [Unknown]
  - Incorrect dose administered [Unknown]
  - Mucosal disorder [Unknown]

NARRATIVE: CASE EVENT DATE: 202102
